FAERS Safety Report 14839659 (Version 1)
Quarter: 2018Q2

REPORT INFORMATION
  Report Type: Spontaneous
  Country: DE (occurrence: DE)
  Receive Date: 20180502
  Receipt Date: 20180502
  Transmission Date: 20180711
  Serious: Yes (Hospitalization)
  Sender: FDA-Public Use
  Company Number: DE-CONCORDIA PHARMACEUTICALS INC.-E2B_00011493

PATIENT
  Age: 77 Year
  Sex: Male

DRUGS (13)
  1. NITRENDIPINE [Concomitant]
     Active Substance: NITRENDIPINE
     Dosage: 10 MG, 1-0-0-0
  2. NO DRUG NAME [Concomitant]
     Dosage: 15 IE, 1-0-0-0
  3. PREDNISOLONE. [Suspect]
     Active Substance: PREDNISOLONE
     Dosage: 1-0-1-0
  4. ATROVENT [Concomitant]
     Active Substance: IPRATROPIUM BROMIDE
     Dosage: 1-1-1-0
  5. ZYTIGA [Suspect]
     Active Substance: ABIRATERONE ACETATE
     Dosage: 250 MG, 1-0-0-0
  6. NIFEDIPINE. [Concomitant]
     Active Substance: NIFEDIPINE
     Dosage: 5 MG, 1-0-0-0
  7. ACC [Concomitant]
     Active Substance: ACETYLCYSTEINE
     Dosage: 600 MG, 1-0-0-0
  8. METAMIZOL [Concomitant]
     Active Substance: METAMIZOLE SODIUM
     Dosage: 500 MG, BEDARF
  9. SULTANOL [Concomitant]
     Active Substance: ALBUTEROL SULFATE
     Dosage: 1-1-1-0
  10. TRAMADOL. [Concomitant]
     Active Substance: TRAMADOL
     Dosage: 50 MG, BEDARF
  11. THEOPHYLLINE [Concomitant]
     Active Substance: THEOPHYLLINE ANHYDROUS
     Dosage: 300 MG, 1-0-0-0
  12. BRIMICA [Concomitant]
     Active Substance: ACLIDINIUM BROMIDE\FORMOTEROL FUMARATE
     Dosage: 1-0-1-0
  13. ACTRAPID [Concomitant]
     Active Substance: INSULIN HUMAN
     Dosage: NACH BZ

REACTIONS (4)
  - Swelling face [Unknown]
  - Localised infection [Unknown]
  - General physical health deterioration [Unknown]
  - Systemic infection [Unknown]
